FAERS Safety Report 4765308-9 (Version None)
Quarter: 2005Q3

REPORT INFORMATION
  Report Type: 
  Country: None (occurrence: None)
  Receive Date: 20050909
  Receipt Date: 20050510
  Transmission Date: 20060218
  Serious: Yes (Hospitalization, Disabling)
  Sender: FDA-Public Use
  Company Number: US-MERCK-0505USA01523

PATIENT
  Age: 62 Year
  Sex: Male
  Weight: 123 kg

DRUGS (9)
  1. VIOXX [Suspect]
     Indication: NECK PAIN
     Route: 048
     Dates: start: 20021101, end: 20040301
  2. VIOXX [Suspect]
     Indication: BACK PAIN
     Route: 048
     Dates: start: 20021101, end: 20040301
  3. VASOTEC RPD [Concomitant]
     Indication: HYPERTENSION
     Route: 065
  4. METFORMIN HYDROCHLORIDE [Concomitant]
     Indication: DIABETES MELLITUS NON-INSULIN-DEPENDENT
     Route: 065
  5. LOTREL [Concomitant]
     Route: 065
     Dates: start: 19980101, end: 20040101
  6. ASPIRIN [Concomitant]
     Route: 065
     Dates: start: 20030201
  7. PRAVACHOL [Concomitant]
     Route: 065
     Dates: start: 20020201, end: 20040501
  8. ALEVE [Concomitant]
     Indication: BACK PAIN
     Route: 065
     Dates: start: 20021001, end: 20030301
  9. NAPROXEN [Concomitant]
     Indication: GOUT
     Route: 065
     Dates: end: 20040501

REACTIONS (10)
  - ANGINA PECTORIS [None]
  - BLOOD POTASSIUM DECREASED [None]
  - CAROTID ARTERY STENOSIS [None]
  - CEREBROVASCULAR ACCIDENT [None]
  - DEPRESSION [None]
  - HYPERTENSION [None]
  - LUNG NEOPLASM [None]
  - MITRAL VALVE INCOMPETENCE [None]
  - TRANSIENT ISCHAEMIC ATTACK [None]
  - VENTRICULAR HYPERTROPHY [None]
